FAERS Safety Report 5392074-9 (Version None)
Quarter: 2007Q3

REPORT INFORMATION
  Report Type: 
  Country: None (occurrence: None)
  Receive Date: 20070717
  Receipt Date: 20070717
  Transmission Date: 20080115
  Serious: Yes (Other)
  Sender: FDA-Public Use
  Company Number: None

PATIENT
  Sex: Female
  Weight: 104.3273 kg

DRUGS (1)
  1. PARNATE [Suspect]
     Indication: DEPRESSION
     Dosage: SEE IMAGE
     Route: 048

REACTIONS (8)
  - CRYING [None]
  - DEPRESSION [None]
  - DIARRHOEA [None]
  - DRUG INEFFECTIVE [None]
  - HYPERHIDROSIS [None]
  - IRRITABILITY [None]
  - LETHARGY [None]
  - PHARMACEUTICAL PRODUCT COMPLAINT [None]
